FAERS Safety Report 7516132-5 (Version None)
Quarter: 2011Q2

REPORT INFORMATION
  Report Type: 
  Country: None (occurrence: None)
  Receive Date: 20110601
  Receipt Date: 20110526
  Transmission Date: 20111010
  Serious: Yes (Hospitalization)
  Sender: FDA-Public Use
  Company Number: CA-ROCHE-779583

PATIENT
  Age: 26 Year
  Sex: Male

DRUGS (6)
  1. OLANZAPINE [Suspect]
     Route: 048
  2. LYRICA [Suspect]
     Route: 048
  3. LANTUS [Suspect]
     Dosage: DOSE: 24 UNITS
     Route: 058
  4. HUMALOG [Concomitant]
  5. LORAZEPAM [Suspect]
     Dosage: DOSE: 1TABLET
     Route: 060
  6. NAPROSYN [Suspect]
     Route: 048

REACTIONS (12)
  - DYSPHAGIA [None]
  - GAIT DISTURBANCE [None]
  - GENERAL PHYSICAL HEALTH DETERIORATION [None]
  - TREMOR [None]
  - VISION BLURRED [None]
  - ACUTE STRESS DISORDER [None]
  - DYSARTHRIA [None]
  - HEADACHE [None]
  - HYPOKINESIA [None]
  - SPEECH DISORDER [None]
  - SOMATISATION DISORDER [None]
  - DISABILITY [None]
